FAERS Safety Report 7083968-7 (Version None)
Quarter: 2010Q4

REPORT INFORMATION
  Report Type: 
  Country: None (occurrence: None)
  Receive Date: 20101104
  Receipt Date: 20100414
  Transmission Date: 20110411
  Serious: No
  Sender: FDA-Public Use
  Company Number: US-ABBOTT-10P-163-0639470-00

PATIENT
  Sex: Female

DRUGS (7)
  1. KALETRA [Suspect]
     Indication: HIV TEST POSITIVE
     Dosage: 200/50MG TABLETS X 2 BID
     Route: 048
     Dates: start: 20100329, end: 20100414
  2. KALETRA [Suspect]
     Route: 048
  3. COMBIVIR [Concomitant]
     Indication: HIV TEST POSITIVE
     Route: 048
  4. BACTRIM DS [Concomitant]
     Route: 048
  5. REYATAZ [Concomitant]
     Indication: HIV TEST POSITIVE
     Route: 048
  6. ZOFRAN [Concomitant]
     Dosage: PRN
  7. ATRIPLA [Concomitant]
     Indication: HIV TEST POSITIVE
     Dates: start: 20100414

REACTIONS (3)
  - DIARRHOEA [None]
  - DIZZINESS [None]
  - NAUSEA [None]
